FAERS Safety Report 13122175 (Version 1)
Quarter: 2017Q1

REPORT INFORMATION
  Report Type: Report from Study
  Country: None (occurrence: US)
  Receive Date: 20170117
  Receipt Date: 20170117
  Transmission Date: 20170428
  Serious: Yes (Hospitalization)
  Sender: FDA-Public Use
  Company Number: US-ABBVIE-16K-163-1783407-00

PATIENT
  Age: 71 Year
  Sex: Male

DRUGS (1)
  1. DUOPA [Suspect]
     Active Substance: CARBIDOPA\LEVODOPA
     Indication: PARKINSON^S DISEASE
     Route: 050
     Dates: start: 20160912

REACTIONS (9)
  - Stoma site odour [Not Recovered/Not Resolved]
  - Stoma site discharge [Not Recovered/Not Resolved]
  - Stoma site haemorrhage [Not Recovered/Not Resolved]
  - Stoma site pain [Not Recovered/Not Resolved]
  - Unintentional medical device removal [Unknown]
  - Device dislocation [Unknown]
  - Acrochordon [Not Recovered/Not Resolved]
  - Proctalgia [Recovered/Resolved]
  - Stoma site infection [Unknown]

NARRATIVE: CASE EVENT DATE: 2016
